FAERS Safety Report 8617780-1 (Version None)
Quarter: 2012Q3

REPORT INFORMATION
  Report Type: 
  Country: None (occurrence: None)
  Receive Date: 20120824
  Receipt Date: 20120316
  Transmission Date: 20120928
  Serious: No
  Sender: FDA-Public Use
  Company Number: US-ASTRAZENECA-2012SE11606

PATIENT
  Age: 51 Year
  Sex: Female
  Weight: 70.3 kg

DRUGS (2)
  1. SYMBICORT [Suspect]
     Indication: CHRONIC SINUSITIS
     Dosage: 160/4.5MCG BID
     Route: 055
     Dates: start: 20090101
  2. SYMBICORT [Suspect]
     Indication: ASTHMA
     Dosage: 160/4.5MCG BID
     Route: 055
     Dates: start: 20090101

REACTIONS (3)
  - DRY MOUTH [None]
  - OFF LABEL USE [None]
  - CIRCUMSTANCE OR INFORMATION CAPABLE OF LEADING TO MEDICATION ERROR [None]
